FAERS Safety Report 18321048 (Version 18)
Quarter: 2022Q2

REPORT INFORMATION
  Report Type: Report from Study
  Country: US (occurrence: US)
  Receive Date: 20200928
  Receipt Date: 20220618
  Transmission Date: 20220720
  Serious: Yes (Hospitalization, Other)
  Sender: FDA-Public Use
  Company Number: US-SHIRE-US202031165

PATIENT
  Age: 46 Year
  Sex: Female
  Weight: 80.726 kg

DRUGS (34)
  1. HUMAN IMMUNOGLOBULIN G [Suspect]
     Active Substance: HUMAN IMMUNOGLOBULIN G
     Indication: Immunodeficiency common variable
     Dosage: 10 GRAM, 1/WEEK
     Route: 058
     Dates: start: 20181203
  2. BACLOFEN [Concomitant]
     Active Substance: BACLOFEN
     Dosage: UNK
  3. VITAMIN D3 [Concomitant]
     Active Substance: CHOLECALCIFEROL
     Dosage: UNK
     Route: 065
  4. NORCO [Concomitant]
     Active Substance: ACETAMINOPHEN\HYDROCODONE BITARTRATE
     Dosage: UNK
     Route: 065
  5. PROBIOTICS NOS [Concomitant]
     Active Substance: PROBIOTICS NOS
     Dosage: UNK
     Route: 065
  6. MAGNESIUM OXIDE [Concomitant]
     Active Substance: MAGNESIUM OXIDE
  7. EPINEPHRINE [Concomitant]
     Active Substance: EPINEPHRINE
     Dosage: UNK
     Route: 065
  8. NAPROXEN [Concomitant]
     Active Substance: NAPROXEN
     Dosage: UNK
     Route: 065
  9. FLUTICASONE PROPIONATE [Concomitant]
     Active Substance: FLUTICASONE PROPIONATE
     Dosage: UNK
     Route: 065
  10. LISINOPRIL [Concomitant]
     Active Substance: LISINOPRIL
     Dosage: UNK
     Route: 065
  11. AZITHROMYCIN [Concomitant]
     Active Substance: AZITHROMYCIN
     Dosage: UNK
     Route: 065
  12. GABAPENTIN [Concomitant]
     Active Substance: GABAPENTIN
     Dosage: UNK
  13. ACETAMINOPHEN [Concomitant]
     Active Substance: ACETAMINOPHEN
     Dosage: UNK
     Route: 065
  14. CORTEF [Concomitant]
     Active Substance: HYDROCORTISONE
     Dosage: UNK
     Route: 065
  15. CYMBALTA [Concomitant]
     Active Substance: DULOXETINE HYDROCHLORIDE
     Dosage: UNK
     Route: 065
  16. LEVOTHYROXINE SODIUM [Concomitant]
     Active Substance: LEVOTHYROXINE SODIUM
  17. PHENERGAN [Concomitant]
     Active Substance: PROMETHAZINE HYDROCHLORIDE
     Dosage: UNK
     Route: 065
  18. METOPROLOL TARTRATE [Concomitant]
     Active Substance: METOPROLOL TARTRATE
  19. BUPRENORPHINE [Concomitant]
     Active Substance: BUPRENORPHINE
  20. MARINOL [Concomitant]
     Active Substance: DRONABINOL
     Dosage: UNK
     Route: 065
  21. ALBUTEROL SULFATE [Concomitant]
     Active Substance: ALBUTEROL SULFATE
  22. FOLIC ACID [Concomitant]
     Active Substance: FOLIC ACID
  23. LAMICTAL [Concomitant]
     Active Substance: LAMOTRIGINE
     Dosage: UNK
     Route: 065
  24. ALBUTEROL [Concomitant]
     Active Substance: ALBUTEROL
     Dosage: UNK
     Route: 065
  25. FLONASE [Concomitant]
     Active Substance: FLUTICASONE PROPIONATE
     Dosage: UNK
     Route: 065
  26. MAGNESIUM [Concomitant]
     Active Substance: MAGNESIUM
     Dosage: UNK
     Route: 065
  27. METOPROLOL [Concomitant]
     Active Substance: METOPROLOL
     Dosage: UNK
     Route: 065
  28. PENTOLINIUM TARTRATE [Concomitant]
     Active Substance: PENTOLINIUM TARTRATE
  29. FLUTICASONE [Concomitant]
     Active Substance: FLUTICASONE
  30. LEVOTHYROXINE [Concomitant]
     Active Substance: LEVOTHYROXINE
     Dosage: UNK
     Route: 065
  31. DIPHENHYDRAMINE [Concomitant]
     Active Substance: DIPHENHYDRAMINE
     Dosage: UNK
     Route: 065
  32. REQUIP [Concomitant]
     Active Substance: ROPINIROLE HYDROCHLORIDE
     Dosage: UNK
     Route: 065
  33. Sulfate de ferrous [Concomitant]
  34. CEFEPIME [Concomitant]
     Active Substance: CEFEPIME HYDROCHLORIDE

REACTIONS (22)
  - Gastric infection [Unknown]
  - Arthritis [Unknown]
  - Hospitalisation [Unknown]
  - Chest pain [Unknown]
  - Arthralgia [Unknown]
  - Pain in extremity [Unknown]
  - Muscle spasms [Unknown]
  - Headache [Unknown]
  - Fatigue [Unknown]
  - Respiratory tract infection [Unknown]
  - Cellulitis [Unknown]
  - Urinary tract infection [Unknown]
  - Sinus disorder [Unknown]
  - Lung disorder [Unknown]
  - Cystitis [Unknown]
  - Lymphadenitis [Unknown]
  - Infusion site bruising [Unknown]
  - Malaise [Unknown]
  - Pain [Unknown]
  - Oral infection [Unknown]
  - Localised infection [Not Recovered/Not Resolved]
  - Sinusitis [Unknown]

NARRATIVE: CASE EVENT DATE: 20220108
